FAERS Safety Report 6868947-4 (Version None)
Quarter: 2010Q3

REPORT INFORMATION
  Report Type: 
  Country: None (occurrence: None)
  Receive Date: 20100721
  Receipt Date: 20100721
  Transmission Date: 20110219
  Serious: Yes (Death)
  Sender: FDA-Public Use
  Company Number: None

PATIENT
  Sex: Male
  Weight: 58 kg

DRUGS (2)
  1. CISPLATIN [Suspect]
     Dosage: 129 MG
     Dates: end: 20100616
  2. TAXOTERE [Suspect]
     Dosage: 130 MG
     Dates: end: 20100616

REACTIONS (3)
  - LIP AND/OR ORAL CAVITY CANCER [None]
  - MYOCARDIAL INFARCTION [None]
  - SUPRAVENTRICULAR EXTRASYSTOLES [None]
